FAERS Safety Report 13191987 (Version 1)
Quarter: 2017Q1

REPORT INFORMATION
  Report Type: Spontaneous
  Country: US (occurrence: US)
  Receive Date: 20170207
  Receipt Date: 20170207
  Transmission Date: 20170428
  Serious: No
  Sender: FDA-Public Use
  Company Number: US-PFIZER INC-2017048908

PATIENT
  Age: 57 Year
  Sex: Female
  Weight: 73 kg

DRUGS (2)
  1. ADVIL [Suspect]
     Active Substance: IBUPROFEN
     Indication: PAIN
     Dosage: UNK
     Route: 048
  2. ADVIL [Suspect]
     Active Substance: IBUPROFEN
     Indication: HEADACHE

REACTIONS (8)
  - Poor quality drug administered [Unknown]
  - Malaise [Recovered/Resolved]
  - Abdominal pain upper [Recovered/Resolved]
  - Nausea [Recovered/Resolved]
  - Pain [Recovered/Resolved]
  - Vomiting [Recovered/Resolved]
  - Product colour issue [Unknown]
  - Product tampering [Unknown]

NARRATIVE: CASE EVENT DATE: 20170201
